FAERS Safety Report 16674873 (Version 1)
Quarter: 2019Q3

REPORT INFORMATION
  Report Type: Other
  Country: CN (occurrence: CN)
  Receive Date: 20190806
  Receipt Date: 20190806
  Transmission Date: 20191004
  Serious: Yes (Other)
  Sender: FDA-Public Use
  Company Number: CN-AGG-07-2019-1969

PATIENT

DRUGS (3)
  1. ASPIRIN. [Concomitant]
     Active Substance: ASPIRIN
     Dosage: 4 HOURS PRIOR TO END OF TIROFIBAN INFUSION, 24 HOURS AFTER EVT PROCEDURE
     Route: 048
  2. AGGRASTAT [Suspect]
     Active Substance: TIROFIBAN HYDROCHLORIDE
     Indication: ANTIPLATELET THERAPY
     Dosage: 16-24 HOURS, DOSAGE WAS 0.15?G/KG/MIN AND REDUCED BY 50% IF CREATININE CLEARANCE (CRCL) {30 ML/MIN
     Route: 041
  3. CLOPIDOGREL [Concomitant]
     Active Substance: CLOPIDOGREL BISULFATE
     Dosage: 4 HOURS PRIOR TO END OF TIROFIBAN INFUSION, 24 HOURS AFTER EVT PROCEDURE
     Route: 048

REACTIONS (1)
  - Haemorrhage intracranial [Unknown]
